FAERS Safety Report 7742128-4 (Version None)
Quarter: 2011Q3

REPORT INFORMATION
  Report Type: 
  Country: None (occurrence: None)
  Receive Date: 20110912
  Receipt Date: 20110831
  Transmission Date: 20111222
  Serious: Yes (Hospitalization)
  Sender: FDA-Public Use
  Company Number: US-JNJFOC-20110902058

PATIENT
  Age: 44 Year
  Sex: Male

DRUGS (3)
  1. EXTRA STRENGTH TYLENOL PM [Suspect]
     Indication: PAIN
     Route: 048
     Dates: start: 20110829, end: 20110829
  2. BENADRYL [Concomitant]
     Indication: HOUSE DUST ALLERGY
     Route: 065
  3. EXTRA STRENGTH TYLENOL PM [Suspect]
     Indication: INSOMNIA
     Route: 048
     Dates: start: 20110829, end: 20110829

REACTIONS (1)
  - SWOLLEN TONGUE [None]
